FAERS Safety Report 15018193 (Version 5)
Quarter: 2018Q4

REPORT INFORMATION
  Report Type: Report from Study
  Country: US (occurrence: US)
  Receive Date: 20180615
  Receipt Date: 20181126
  Transmission Date: 20190204
  Serious: Yes (Hospitalization)
  Sender: FDA-Public Use
  Company Number: US-EISAI MEDICAL RESEARCH-EC-2018-041244

PATIENT
  Age: 61 Year
  Sex: Female
  Weight: 57 kg

DRUGS (19)
  1. AMLODIPINE [Concomitant]
     Active Substance: AMLODIPINE BESYLATE
  2. CARTIA XT [Concomitant]
     Active Substance: DILTIAZEM HYDROCHLORIDE
  3. WARFARIN [Concomitant]
     Active Substance: WARFARIN
  4. DILTIAZEM. [Concomitant]
     Active Substance: DILTIAZEM
  5. CLONIDINE. [Concomitant]
     Active Substance: CLONIDINE
  6. DIPHENOXLATE WITH ATROPINE [Concomitant]
  7. IMIQUIMOD. [Concomitant]
     Active Substance: IMIQUIMOD
  8. NOVOLOG [Concomitant]
     Active Substance: INSULIN ASPART
  9. LENVIMA [Suspect]
     Active Substance: LENVATINIB
     Route: 048
     Dates: start: 2018, end: 2018
  10. CYCLOSPORINE. [Concomitant]
     Active Substance: CYCLOSPORINE
  11. LEVOTHYROXINE. [Concomitant]
     Active Substance: LEVOTHYROXINE
  12. LENVIMA [Suspect]
     Active Substance: LENVATINIB
     Route: 048
     Dates: start: 2018
  13. PREDNISONE. [Concomitant]
     Active Substance: PREDNISONE
  14. LASIX [Concomitant]
     Active Substance: FUROSEMIDE
  15. LENVIMA [Suspect]
     Active Substance: LENVATINIB
     Indication: THYROID CANCER
     Route: 048
     Dates: start: 20180511, end: 2018
  16. LENVIMA [Suspect]
     Active Substance: LENVATINIB
     Route: 048
     Dates: start: 2018, end: 20180826
  17. METOPROLOL. [Concomitant]
     Active Substance: METOPROLOL
  18. LENVIMA [Suspect]
     Active Substance: LENVATINIB
     Route: 048
     Dates: start: 201809
  19. DOXAZOSIN [Concomitant]
     Active Substance: DOXAZOSIN\DOXAZOSIN MESYLATE

REACTIONS (12)
  - Retching [Unknown]
  - Diarrhoea [Not Recovered/Not Resolved]
  - Cellulitis [Recovering/Resolving]
  - Haemophilus sepsis [Not Recovered/Not Resolved]
  - Dialysis related complication [Recovering/Resolving]
  - Hypertension [Not Recovered/Not Resolved]
  - Oral pain [Not Recovered/Not Resolved]
  - Muscle spasms [Not Recovered/Not Resolved]
  - Fistula [Unknown]
  - Stomatitis [Not Recovered/Not Resolved]
  - Dysphonia [Not Recovered/Not Resolved]
  - Pyrexia [Unknown]

NARRATIVE: CASE EVENT DATE: 2018
